FAERS Safety Report 5984251-0 (Version None)
Quarter: 2008Q4

REPORT INFORMATION
  Report Type: 
  Country: None (occurrence: None)
  Receive Date: 20081205
  Receipt Date: 20081205
  Transmission Date: 20090506
  Serious: No
  Sender: FDA-Public Use
  Company Number: None

PATIENT
  Age: 65 Year
  Sex: Female
  Weight: 83 kg

DRUGS (1)
  1. LYRICA [Suspect]
     Indication: NEURALGIA

REACTIONS (2)
  - ANOREXIA [None]
  - THERAPEUTIC RESPONSE UNEXPECTED [None]
